FAERS Safety Report 9358004 (Version 1)
Quarter: 2013Q2

REPORT INFORMATION
  Report Type: Spontaneous
  Country: US (occurrence: US)
  Receive Date: 20130620
  Receipt Date: 20130620
  Transmission Date: 20140414
  Serious: Yes (Other)
  Sender: FDA-Public Use
  Company Number: US-BAYER-2013-075714

PATIENT
  Age: 25 Year
  Sex: Female
  Weight: 104.76 kg

DRUGS (6)
  1. YAZ [Suspect]
     Indication: CONTRACEPTION
  2. YASMIN [Suspect]
     Indication: CONTRACEPTION
  3. OCELLA [Suspect]
  4. METHOTREXATE [Concomitant]
  5. DACTINOMYCIN [Concomitant]
  6. CHEMOTHERAPEUTICS NOS [Concomitant]

REACTIONS (3)
  - Thrombophlebitis superficial [None]
  - Subclavian vein thrombosis [None]
  - Axillary vein thrombosis [None]
